FAERS Safety Report 6197171-6 (Version None)
Quarter: 2009Q2

REPORT INFORMATION
  Report Type: 
  Country: None (occurrence: None)
  Receive Date: 20090520
  Receipt Date: 20090512
  Transmission Date: 20091009
  Serious: Yes (Hospitalization)
  Sender: FDA-Public Use
  Company Number: US-GILEAD-2009-0021945

PATIENT
  Sex: Female

DRUGS (5)
  1. LETAIRIS [Suspect]
     Indication: PULMONARY ARTERIAL HYPERTENSION
     Route: 048
     Dates: start: 20081210
  2. ZOCOR [Concomitant]
  3. CLONAZEPAM [Concomitant]
  4. CITALOPRAM HYDROBROMIDE [Concomitant]
  5. PANTOPRAZOLE SODIUM [Concomitant]

REACTIONS (2)
  - BLOOD PRESSURE INCREASED [None]
  - DYSPNOEA [None]
